FAERS Safety Report 7735375-9 (Version None)
Quarter: 2011Q3

REPORT INFORMATION
  Report Type: 
  Country: None (occurrence: None)
  Receive Date: 20110907
  Receipt Date: 20110831
  Transmission Date: 20111222
  Serious: Yes (Hospitalization, Other)
  Sender: FDA-Public Use
  Company Number: PHHY2011TN77963

PATIENT
  Age: 43 Year
  Sex: Female

DRUGS (1)
  1. MEPROBAMATE [Suspect]

REACTIONS (11)
  - CARDIOVASCULAR INSUFFICIENCY [None]
  - RESPIRATORY DEPRESSION [None]
  - TOXICITY TO VARIOUS AGENTS [None]
  - RESPIRATORY DISORDER [None]
  - OVERDOSE [None]
  - LOSS OF CONSCIOUSNESS [None]
  - EXTRAPYRAMIDAL DISORDER [None]
  - SUICIDE ATTEMPT [None]
  - PANCREATITIS ACUTE [None]
  - LEUKOCYTOSIS [None]
  - CHOLELITHIASIS [None]
